FAERS Safety Report 25381452 (Version 3)
Quarter: 2025Q3

REPORT INFORMATION
  Report Type: Report from Study
  Country: EU (occurrence: EU)
  Receive Date: 20250530
  Receipt Date: 20250801
  Transmission Date: 20251020
  Serious: Yes (Disabling)
  Sender: SK LIFE SCIENCE
  Company Number: EU-ACRAF-2025-038037

PATIENT

DRUGS (4)
  1. XCOPRI [Suspect]
     Active Substance: CENOBAMATE
     Indication: Epilepsy
     Dosage: 50 MG, THEN 100 MG THEN 150 MG THEN STOPPED
     Route: 048
     Dates: start: 20250206
  2. XCOPRI [Suspect]
     Active Substance: CENOBAMATE
     Dosage: 50 MG, THEN 100 MG THEN 150 MG THEN STOPPED
     Route: 048
  3. XCOPRI [Suspect]
     Active Substance: CENOBAMATE
     Dosage: 50 MG, THEN 100 MG THEN 150 MG THEN STOPPED
     Route: 048
     Dates: end: 20250415
  4. TOPIRAMATE [Concomitant]
     Active Substance: TOPIRAMATE
     Indication: Epilepsy
     Route: 065
     Dates: start: 20210121

REACTIONS (4)
  - Paraparesis [Recovered/Resolved]
  - Muscular weakness [Recovered/Resolved]
  - Fatigue [Recovered/Resolved]
  - Gait disturbance [Recovered/Resolved]

NARRATIVE: CASE EVENT DATE: 20250401
